FAERS Safety Report 9423647 (Version 3)
Quarter: 2013Q3

REPORT INFORMATION
  Report Type: Spontaneous
  Country: IT (occurrence: IT)
  Receive Date: 20130726
  Receipt Date: 20130801
  Transmission Date: 20140515
  Serious: Yes (Hospitalization)
  Sender: FDA-Public Use
  Company Number: IT-ROCHE-1253313

PATIENT
  Age: 60 Year
  Sex: Male
  Weight: 62 kg

DRUGS (12)
  1. VALCYTE [Suspect]
     Indication: CYTOMEGALOVIRUS INFECTION
     Route: 048
     Dates: start: 20130617
  2. SANDIMMUN NEORAL [Concomitant]
     Indication: PROPHYLAXIS AGAINST TRANSPLANT REJECTION
     Route: 048
  3. DELTACORTENE [Concomitant]
     Route: 048
  4. PANTORC [Concomitant]
     Route: 048
  5. LASIX [Concomitant]
     Route: 048
  6. LESCOL [Concomitant]
     Route: 048
  7. FERLIXIT [Concomitant]
  8. BACTRIM [Concomitant]
     Route: 048
  9. LOPRESOR [Concomitant]
     Route: 048
  10. ZOLOFT [Concomitant]
     Route: 048
  11. ESAPENT [Concomitant]
     Route: 048
  12. FOLINA [Concomitant]
     Route: 048

REACTIONS (2)
  - Febrile neutropenia [Recovering/Resolving]
  - Shock [Recovering/Resolving]
